FAERS Safety Report 15328991 (Version 2)
Quarter: 2018Q4

REPORT INFORMATION
  Report Type: Spontaneous
  Country: IT (occurrence: IT)
  Receive Date: 20180829
  Receipt Date: 20181025
  Transmission Date: 20190204
  Serious: Yes (Life-Threatening)
  Sender: FDA-Public Use
  Company Number: IT-SUN PHARMACEUTICAL INDUSTRIES LTD-2018RR-182776

PATIENT
  Age: 21 Year
  Sex: Female

DRUGS (4)
  1. PAROXETINE. [Suspect]
     Active Substance: PAROXETINE
     Indication: PERSONALITY DISORDER
     Dosage: IN TOTAL
     Route: 048
     Dates: start: 20180725, end: 20180725
  2. EFEXOR 150 MG CAPSULE RIGIDE A RILASCIO PROLUNGATO [Suspect]
     Active Substance: VENLAFAXINE HYDROCHLORIDE
     Indication: PERSONALITY DISORDER
     Dosage: IN TOTAL
     Route: 048
     Dates: start: 20180725, end: 20180725
  3. DELORAZEPAM [Suspect]
     Active Substance: DELORAZEPAM
     Indication: PERSONALITY DISORDER
     Dosage: IN TOTAL
     Route: 048
     Dates: start: 20180725, end: 20180725
  4. QUETIAPINE FUMARATE. [Suspect]
     Active Substance: QUETIAPINE FUMARATE
     Indication: PERSONALITY DISORDER
     Dosage: IN TOTAL
     Route: 048
     Dates: start: 20180725, end: 20180725

REACTIONS (4)
  - Intentional self-injury [Recovered/Resolved]
  - Sopor [Recovered/Resolved]
  - Drug abuse [Recovered/Resolved]
  - Tachycardia [Recovered/Resolved]

NARRATIVE: CASE EVENT DATE: 20180725
